FAERS Safety Report 5707434-3 (Version None)
Quarter: 2008Q2

REPORT INFORMATION
  Report Type: 
  Country: None (occurrence: None)
  Receive Date: 20080416
  Receipt Date: 20080410
  Transmission Date: 20081010
  Serious: Yes (Other)
  Sender: FDA-Public Use
  Company Number: RU-BOEHRINGER INGELHEIM GMBH, GERMANY-2008-DE-01696GD

PATIENT
  Sex: Male

DRUGS (2)
  1. DIPYRIDAMOLE AMPOULE [Suspect]
     Indication: STRESS ECHOCARDIOGRAM
     Dosage: 0,84 MG/KG
     Route: 042
  2. ATROPINE [Suspect]
     Indication: STRESS ECHOCARDIOGRAM
     Dosage: 0.1% SOLUTION IN 0.25 ML PORTIONS UNTIL SUB-MAXIMUM HEART RATE AS PER AHA/ACC RECOMMENDATION
     Route: 042

REACTIONS (2)
  - ACUTE CORONARY SYNDROME [None]
  - CORONARY ARTERY STENOSIS [None]
